FAERS Safety Report 11810655 (Version 1)
Quarter: 2015Q4

REPORT INFORMATION
  Report Type: Spontaneous
  Country: US (occurrence: None)
  Receive Date: 20151207
  Receipt Date: 20151207
  Transmission Date: 20160305
  Serious: Yes (Hospitalization, Disabling, Other)
  Sender: FDA-Public Use
  Company Number: None

PATIENT
  Age: 26 Year
  Sex: Male
  Weight: 81.65 kg

DRUGS (4)
  1. MAGNESIUM [Concomitant]
     Active Substance: MAGNESIUM
  2. LEVOFLOXACIN 500 MG [Suspect]
     Active Substance: LEVOFLOXACIN
     Dosage: 1 PILL
     Route: 048
  3. ATURAL REMEDIES [Concomitant]
  4. PROBIOTICS [Concomitant]
     Active Substance: PROBIOTICS NOS

REACTIONS (17)
  - Urticaria [None]
  - Psychotic disorder [None]
  - Myalgia [None]
  - Tremor [None]
  - Vertigo [None]
  - Palpitations [None]
  - Muscle disorder [None]
  - Depersonalisation [None]
  - Muscle spasms [None]
  - Panic attack [None]
  - Anxiety [None]
  - Dizziness [None]
  - Amnesia [None]
  - Torticollis [None]
  - Agoraphobia [None]
  - Rash [None]
  - Hallucination [None]

NARRATIVE: CASE EVENT DATE: 20150606
